FAERS Safety Report 22269147 (Version 12)
Quarter: 2024Q1

REPORT INFORMATION
  Report Type: Spontaneous
  Country: US (occurrence: US)
  Receive Date: 20230501
  Receipt Date: 20240211
  Transmission Date: 20240409
  Serious: No
  Sender: FDA-Public Use
  Company Number: US-GLAXOSMITHKLINE-US2023AMR061572

PATIENT
  Sex: Female

DRUGS (4)
  1. ZEJULA [Suspect]
     Active Substance: NIRAPARIB
     Indication: Ovarian cancer
     Dosage: 200 MG, QD
  2. ZEJULA [Suspect]
     Active Substance: NIRAPARIB
     Dosage: 100 MG, QD
     Dates: start: 202305
  3. ZEJULA [Suspect]
     Active Substance: NIRAPARIB
     Indication: Ovarian cancer
     Dosage: 100 MG, QD
  4. AVASTIN [Suspect]
     Active Substance: BEVACIZUMAB
     Indication: Product used for unknown indication
     Dosage: UNK, Q3W (INFUSION)

REACTIONS (15)
  - Increased appetite [Unknown]
  - Rash macular [Unknown]
  - Platelet count decreased [Not Recovered/Not Resolved]
  - Fatigue [Recovering/Resolving]
  - Nausea [Recovering/Resolving]
  - Decreased appetite [Not Recovered/Not Resolved]
  - Petechiae [Unknown]
  - Malaise [Unknown]
  - Constipation [Unknown]
  - Blood pressure increased [Unknown]
  - Carbohydrate antigen 125 increased [Unknown]
  - Arthralgia [Unknown]
  - Lymphadenitis [Unknown]
  - Lymphadenopathy [Unknown]
  - Product dose omission issue [Unknown]
